FAERS Safety Report 19493661 (Version 1)
Quarter: 2021Q3

REPORT INFORMATION
  Report Type: Spontaneous
  Country: US (occurrence: US)
  Receive Date: 20210705
  Receipt Date: 20210705
  Transmission Date: 20211014
  Serious: No
  Sender: FDA-Public Use
  Company Number: US-AMGEN-USASP2021100073

PATIENT
  Age: 86 Year
  Sex: Female

DRUGS (1)
  1. PROLIA [Suspect]
     Active Substance: DENOSUMAB
     Indication: OSTEOPOROSIS POSTMENOPAUSAL
     Dosage: UNK
     Route: 065
     Dates: start: 2019

REACTIONS (12)
  - Body temperature increased [Unknown]
  - Blood pressure abnormal [Unknown]
  - Arthralgia [Unknown]
  - Arthropathy [Unknown]
  - Skin irritation [Unknown]
  - Malaise [Unknown]
  - Influenza like illness [Unknown]
  - Diarrhoea [Unknown]
  - Confusional state [Recovering/Resolving]
  - Memory impairment [Unknown]
  - Myalgia [Unknown]
  - Abdominal pain upper [Unknown]

NARRATIVE: CASE EVENT DATE: 202106
